FAERS Safety Report 6263438 (Version 22)
Quarter: 2013Q4

REPORT INFORMATION
  Report Type: Spontaneous
  Country: US (occurrence: US)
  Receive Date: 20070316
  Receipt Date: 20131121
  Transmission Date: 20140711
  Serious: Yes (Disabling, Other)
  Sender: FDA-Public Use
  Company Number: PHEH2007US02869

PATIENT
  Age: 75 Year
  Sex: Male
  Weight: 87.98 kg

DRUGS (24)
  1. ZOMETA [Suspect]
     Indication: PLASMA CELL MYELOMA
     Dosage: 4 MG, QMO
     Dates: start: 200208, end: 20040722
  2. AREDIA [Suspect]
  3. CEFTIN [Suspect]
  4. HYTRIN [Concomitant]
     Indication: PROSTATITIS
  5. PROSCAR [Concomitant]
     Indication: PROSTATITIS
  6. ADRENERGIC DRUGS [Concomitant]
  7. LIPITOR [Concomitant]
  8. ZOCOR ^DIECKMANN^ [Concomitant]
  9. VITAMINS [Concomitant]
  10. SAW PALMETTO [Concomitant]
  11. ASPIRIN ^BAYER^ [Concomitant]
  12. VITAMIN E [Concomitant]
  13. AMOXICILLIN [Concomitant]
  14. TYLENOL W/CODEINE NO. 3 [Concomitant]
  15. PERIDEX [Concomitant]
  16. AUGMENTIN [Concomitant]
  17. LODINE [Concomitant]
  18. VICODIN [Concomitant]
  19. MULTIVITAMINS [Concomitant]
  20. COQ10 [Concomitant]
  21. GLUCOSAMINE /CHONDROITIN /MSM [Concomitant]
  22. MIRALAX [Concomitant]
  23. TOPROL XL [Concomitant]
     Dosage: 25 MG, QD
     Route: 048
  24. ZETIA [Concomitant]
     Dosage: 10 MG, QD
     Route: 048

REACTIONS (93)
  - Skin cancer [Unknown]
  - Squamous cell carcinoma [Unknown]
  - Osteonecrosis of jaw [Unknown]
  - Bone loss [Unknown]
  - Bone disorder [Unknown]
  - Gingival erosion [Unknown]
  - Fistula [Unknown]
  - Exostosis of jaw [Unknown]
  - Bone erosion [Unknown]
  - General physical health deterioration [Unknown]
  - Pain [Unknown]
  - Decreased interest [Unknown]
  - Anxiety [Unknown]
  - Plasma cell myeloma [Unknown]
  - Beta 2 microglobulin increased [Unknown]
  - Bone scan abnormal [Unknown]
  - Osteopenia [Unknown]
  - Plasma cells increased [Unknown]
  - Abdominal hernia [Unknown]
  - Prostatic obstruction [Unknown]
  - Prostatomegaly [Unknown]
  - Prostatitis [Unknown]
  - Paroxysmal nocturnal haemoglobinuria [Unknown]
  - Prostatic specific antigen increased [Unknown]
  - Large intestine polyp [Unknown]
  - Intervertebral disc protrusion [Unknown]
  - Chest pain [Unknown]
  - Blood creatine phosphokinase increased [Unknown]
  - Skin lesion [Unknown]
  - Maculopathy [Unknown]
  - Peripheral vascular disorder [Unknown]
  - Vision blurred [Unknown]
  - Optic nerve cupping [Unknown]
  - Bifascicular block [Unknown]
  - Bundle branch block right [Unknown]
  - Syncope [Unknown]
  - Myositis [Unknown]
  - Cardiac valve disease [Unknown]
  - Aortic valve incompetence [Unknown]
  - Mitral valve incompetence [Unknown]
  - Cardiac aneurysm [Unknown]
  - Bronchopneumonia [Unknown]
  - Left ventricular hypertrophy [Unknown]
  - Dilatation atrial [Unknown]
  - Mitral valve calcification [Unknown]
  - Tricuspid valve incompetence [Unknown]
  - Aortic dilatation [Unknown]
  - Second primary malignancy [Unknown]
  - Actinic keratosis [Unknown]
  - Hot flush [Unknown]
  - Lymphadenopathy [Unknown]
  - Eyelid oedema [Unknown]
  - Swelling face [Unknown]
  - Fatigue [Unknown]
  - Constipation [Unknown]
  - Osteoporosis [Unknown]
  - Polyp [Unknown]
  - Marrow hyperplasia [Unknown]
  - Plasmacytosis [Unknown]
  - Blood creatinine increased [Unknown]
  - Erectile dysfunction [Unknown]
  - Supraventricular tachycardia [Unknown]
  - Extrasystoles [Unknown]
  - Pulmonary valve incompetence [Unknown]
  - Pulmonary hypertension [Unknown]
  - Circulatory collapse [Unknown]
  - Arrhythmia [Unknown]
  - Chorioretinal scar [Unknown]
  - Haematuria [Unknown]
  - Respiratory tract infection [Unknown]
  - Renal failure chronic [Unknown]
  - Haemorrhoidal haemorrhage [Unknown]
  - Urine flow decreased [Unknown]
  - Scar [Recovering/Resolving]
  - Intervertebral disc space narrowing [Unknown]
  - Scoliosis [Unknown]
  - Arthropathy [Unknown]
  - Spinal osteoarthritis [Unknown]
  - Groin pain [Unknown]
  - Bladder trabeculation [Unknown]
  - Hyperplasia [Unknown]
  - Prostatic haemorrhage [Unknown]
  - Atrial fibrillation [Unknown]
  - Tachyarrhythmia [Unknown]
  - Dizziness [Recovered/Resolved]
  - Palpitations [Unknown]
  - Hypogammaglobulinaemia [Unknown]
  - Blood immunoglobulin M decreased [Unknown]
  - Hypertension [Unknown]
  - Melanosis [Unknown]
  - Campbell de Morgan spots [Unknown]
  - Seborrhoeic keratosis [Unknown]
  - Influenza like illness [Unknown]
